FAERS Safety Report 4722406-3 (Version None)
Quarter: 2005Q3

REPORT INFORMATION
  Report Type: 
  Country: None (occurrence: None)
  Receive Date: 20050722
  Receipt Date: 20050407
  Transmission Date: 20060218
  Serious: No
  Sender: FDA-Public Use
  Company Number: US-GLAXOSMITHKLINE-A0553155A

PATIENT
  Sex: Male

DRUGS (4)
  1. AVANDIA [Suspect]
     Dosage: 4MG FOUR TIMES PER DAY
     Route: 048
     Dates: start: 20050404
  2. RYTHMOL [Concomitant]
  3. ATENOLOL [Concomitant]
  4. GLUCOPHAGE [Concomitant]

REACTIONS (1)
  - HYPERGLYCAEMIA [None]
